FAERS Safety Report 6764904-7 (Version None)
Quarter: 2010Q2

REPORT INFORMATION
  Report Type: 
  Country: None (occurrence: None)
  Receive Date: 20100609
  Receipt Date: 20100503
  Transmission Date: 20101027
  Serious: No
  Sender: FDA-Public Use
  Company Number: 2010010828

PATIENT
  Sex: Female

DRUGS (1)
  1. CHILDREN'S ZYRTEC ALLERGY [Suspect]
     Indication: HYPERSENSITIVITY
     Dosage: 1 1/2 TSPS ONCE DAILY,ORAL
     Route: 048
     Dates: start: 20100425, end: 20100430

REACTIONS (2)
  - COUGH [None]
  - PRODUCT QUALITY ISSUE [None]
